FAERS Safety Report 15705914 (Version 2)
Quarter: 2019Q1

REPORT INFORMATION
  Report Type: Spontaneous
  Country: KR (occurrence: KR)
  Receive Date: 20181210
  Receipt Date: 20190109
  Transmission Date: 20190417
  Serious: Yes (Hospitalization, Other)
  Sender: FDA-Public Use
  Company Number: KR-009507513-1812KOR001044

PATIENT
  Sex: Male

DRUGS (4)
  1. SODIUM CHLORIDE. [Concomitant]
     Active Substance: SODIUM CHLORIDE
     Dosage: 1 BAG
     Dates: start: 20181114, end: 20181114
  2. KEYTRUDA [Suspect]
     Active Substance: PEMBROLIZUMAB
     Dosage: (QUANTITY: 2)
     Dates: start: 20181126, end: 20181126
  3. KEYTRUDA [Suspect]
     Active Substance: PEMBROLIZUMAB
     Indication: MALIGNANT NEOPLASM PROGRESSION
     Dosage: UNK
     Dates: start: 20181029, end: 20181029
  4. KEYTRUDA [Suspect]
     Active Substance: PEMBROLIZUMAB
     Dosage: STRENGTH: 100MG (QUANTITY: 2)
     Dates: start: 20181218, end: 20181218

REACTIONS (2)
  - Product use in unapproved indication [Unknown]
  - Pleural effusion [Unknown]

NARRATIVE: CASE EVENT DATE: 2018
